FAERS Safety Report 21666541 (Version 2)
Quarter: 2022Q4

REPORT INFORMATION
  Report Type: Report from Study
  Country: US (occurrence: US)
  Receive Date: 20221201
  Receipt Date: 20221210
  Transmission Date: 20230112
  Serious: No
  Sender: FDA-Public Use
  Company Number: US-ABBVIE-4177355

PATIENT
  Age: 60 Year
  Sex: Male

DRUGS (2)
  1. HUMIRA [Suspect]
     Active Substance: ADALIMUMAB
     Indication: Colitis ulcerative
     Dosage: 40 MG, END DATE 2022
     Route: 058
     Dates: start: 20220426
  2. HUMIRA [Suspect]
     Active Substance: ADALIMUMAB
     Dosage: 40 MG, START DATE 2022
     Route: 058

REACTIONS (5)
  - Drug ineffective [Unknown]
  - Gastrooesophageal reflux disease [Not Recovered/Not Resolved]
  - Sinusitis [Recovering/Resolving]
  - SARS-CoV-2 test positive [Recovered/Resolved]
  - Diarrhoea [Not Recovered/Not Resolved]

NARRATIVE: CASE EVENT DATE: 20220701
